FAERS Safety Report 6107482-8 (Version None)
Quarter: 2009Q1

REPORT INFORMATION
  Report Type: 
  Country: None (occurrence: None)
  Receive Date: 20090303
  Receipt Date: 20090220
  Transmission Date: 20090719
  Serious: Yes (Other)
  Sender: FDA-Public Use
  Company Number: 2009PV000009

PATIENT
  Age: 50 Year
  Sex: Female

DRUGS (1)
  1. DEPOCYT [Suspect]
     Indication: CENTRAL NERVOUS SYSTEM LEUKAEMIA
     Dosage: 40 MG; X2; INTH
     Route: 037
     Dates: start: 20090122, end: 20090129

REACTIONS (4)
  - NEUROTOXICITY [None]
  - PARAESTHESIA [None]
  - PERONEAL NERVE PALSY [None]
  - POLYNEUROPATHY [None]
